FAERS Safety Report 9384969 (Version 1)
Quarter: 2013Q3

REPORT INFORMATION
  Report Type: Spontaneous
  Country: CA (occurrence: CA)
  Receive Date: 20130705
  Receipt Date: 20130705
  Transmission Date: 20140515
  Serious: Yes (Death, Hospitalization, Other)
  Sender: FDA-Public Use
  Company Number: CA-PURDUE-CAN-2013-0004266

PATIENT
  Age: 32 Year
  Sex: Male

DRUGS (30)
  1. DILAUDID [Suspect]
     Indication: PRODUCT USED FOR UNKNOWN INDICATION
     Dosage: 0.5 MG, SINGLE
     Route: 042
     Dates: start: 20110805, end: 20110805
  2. DILAUDID [Suspect]
     Dosage: 0.5 MG, SINGLE
     Route: 042
     Dates: start: 20110805, end: 20110805
  3. DILAUDID [Suspect]
     Dosage: 0.5 MG, SINGLE
     Route: 042
     Dates: start: 20110805, end: 20110805
  4. DILAUDID [Suspect]
     Dosage: 1 MG, SINGLE
     Route: 042
     Dates: start: 20110805, end: 20110805
  5. DILAUDID [Suspect]
     Dosage: 1 MG, SINGLE
     Route: 042
     Dates: start: 20110805, end: 20110805
  6. DILAUDID [Suspect]
     Dosage: 1 MG, SINGLE
     Route: 042
     Dates: start: 20110805, end: 20110805
  7. DILAUDID [Suspect]
     Dosage: 2 MG, SINGLE
     Route: 058
     Dates: start: 20110805, end: 20110805
  8. DILAUDID [Suspect]
     Dosage: 3 MG, SINGLE
     Route: 058
     Dates: start: 20110805, end: 20110805
  9. DILAUDID [Suspect]
     Dosage: 3 MG, SINGLE
     Route: 058
     Dates: start: 20110805, end: 20110805
  10. DILAUDID [Suspect]
     Dosage: 3 MG, SINGLE
     Route: 058
     Dates: start: 20110806, end: 20110806
  11. DILAUDID [Suspect]
     Dosage: 3 MG, SINGLE
     Route: 058
     Dates: start: 20110806, end: 20110806
  12. DILAUDID [Suspect]
     Dosage: 3 MG, SINGLE
     Route: 058
     Dates: start: 20110806, end: 20110806
  13. DILAUDID [Suspect]
     Dosage: 3 MG, SINGLE
     Route: 058
     Dates: start: 20110806, end: 20110806
  14. DILAUDID [Suspect]
     Dosage: 3 MG, SINGLE
     Route: 058
     Dates: start: 20110806, end: 20110806
  15. DILAUDID [Suspect]
     Dosage: 3 MG, SINGLE
     Route: 058
     Dates: start: 20110807, end: 20110807
  16. ZOFRAN [Suspect]
     Indication: PRODUCT USED FOR UNKNOWN INDICATION
     Dosage: 6 MG, SINGLE
     Route: 042
     Dates: start: 20110805, end: 20110805
  17. ZOFRAN [Suspect]
     Dosage: 6 MG, SINGLE
     Route: 042
     Dates: start: 20110805, end: 20110805
  18. ZOFRAN [Suspect]
     Dosage: 6 MG, SINGLE
     Route: 042
     Dates: start: 20110805, end: 20110805
  19. ZOFRAN [Suspect]
     Dosage: 6 MG, SINGLE
     Route: 042
     Dates: start: 20110806, end: 20110806
  20. ZOFRAN [Suspect]
     Dosage: 6 MG, SINGLE
     Route: 042
     Dates: start: 20110806, end: 20110806
  21. ZOFRAN [Suspect]
     Dosage: 6 MG, SINGLE
     Route: 042
     Dates: start: 20110807, end: 20110807
  22. GRAVOL [Suspect]
     Indication: PRODUCT USED FOR UNKNOWN INDICATION
     Dosage: 50 MG, SINGLE
     Route: 042
     Dates: start: 20110805, end: 20110805
  23. GRAVOL [Suspect]
     Dosage: 50 MG, SINGLE
     Route: 042
     Dates: start: 20110805, end: 20110805
  24. GRAVOL [Suspect]
     Dosage: 50 MG, SINGLE
     Route: 042
     Dates: start: 20110806, end: 20110806
  25. GRAVOL [Suspect]
     Dosage: 50 MG, SINGLE
     Route: 042
     Dates: start: 20110806, end: 20110806
  26. GRAVOL [Suspect]
     Dosage: 50 MG, SINGLE
     Route: 042
     Dates: start: 20110806, end: 20110806
  27. MIDAZOLAM [Suspect]
     Indication: CONVULSION
     Dosage: 2.5 MG, UNK
     Route: 065
     Dates: start: 20110807, end: 20110807
  28. MIDAZOLAM [Suspect]
     Dosage: 5 MG, UNK
     Route: 065
     Dates: start: 20110807, end: 20110807
  29. PROPOFOL [Suspect]
     Indication: PRODUCT USED FOR UNKNOWN INDICATION
     Dosage: 5 ML, UNK
     Route: 065
     Dates: start: 20110807, end: 20110807
  30. BENADRYL /00000402/ [Suspect]
     Indication: PRODUCT USED FOR UNKNOWN INDICATION
     Dosage: UNK
     Route: 065

REACTIONS (8)
  - Cardiomegaly [Fatal]
  - Respiratory distress [Unknown]
  - Pneumothorax [Unknown]
  - Hydrothorax [Unknown]
  - Atelectasis [Unknown]
  - Oxygen saturation decreased [Unknown]
  - Aspiration [Unknown]
  - Convulsion [Unknown]
